FAERS Safety Report 8347189-X (Version None)
Quarter: 2012Q2

REPORT INFORMATION
  Report Type: 
  Country: None (occurrence: None)
  Receive Date: 20120509
  Receipt Date: 20120507
  Transmission Date: 20120825
  Serious: Yes (Death)
  Sender: FDA-Public Use
  Company Number: AU-ROCHE-1066578

PATIENT
  Sex: Female

DRUGS (6)
  1. AVASTIN [Suspect]
     Dates: start: 20120410
  2. HYDROCORTISONE [Concomitant]
     Dosage: LAST DOSE: 13/MAR/2012
     Route: 042
     Dates: start: 20120313
  3. PHENERGAN [Concomitant]
     Route: 042
     Dates: start: 20120313
  4. AVASTIN [Suspect]
     Indication: GLIOBLASTOMA MULTIFORME
     Dates: start: 20120424
  5. CARBOPLATIN [Suspect]
     Indication: GLIOBLASTOMA MULTIFORME
  6. RANITIDINE [Concomitant]
     Route: 048
     Dates: start: 20120313

REACTIONS (1)
  - CEREBRAL HAEMORRHAGE [None]
